FAERS Safety Report 18534471 (Version 1)
Quarter: 2020Q4

REPORT INFORMATION
  Report Type: Spontaneous
  Country: US (occurrence: US)
  Receive Date: 20201123
  Receipt Date: 20201123
  Transmission Date: 20210114
  Serious: Yes (Hospitalization, Other)
  Sender: FDA-Public Use
  Company Number: US-INCYTE CORPORATION-2020IN011495

PATIENT

DRUGS (1)
  1. JAKAFI [Suspect]
     Active Substance: RUXOLITINIB
     Indication: MYELODYSPLASTIC SYNDROME
     Dosage: 5 MILLIGRAM, QD
     Route: 048
     Dates: start: 20170908

REACTIONS (2)
  - Terminal state [Unknown]
  - Off label use [Unknown]

NARRATIVE: CASE EVENT DATE: 20170908
